FAERS Safety Report 13662319 (Version 3)
Quarter: 2018Q2

REPORT INFORMATION
  Report Type: Report from Study
  Country: None (occurrence: US)
  Receive Date: 20170617
  Receipt Date: 20180418
  Transmission Date: 20180711
  Serious: Yes (Other)
  Sender: FDA-Public Use
  Company Number: US-ABBVIE-17K-163-1901370-00

PATIENT
  Age: 61 Year
  Sex: Female

DRUGS (5)
  1. HUMIRA [Suspect]
     Active Substance: ADALIMUMAB
     Route: 058
     Dates: start: 2017
  2. METHOTREXATE. [Suspect]
     Active Substance: METHOTREXATE
     Indication: RHEUMATOID ARTHRITIS
     Route: 065
  3. HUMIRA [Suspect]
     Active Substance: ADALIMUMAB
     Indication: RHEUMATOID ARTHRITIS
     Route: 058
     Dates: end: 2017
  4. METHOTREXATE. [Suspect]
     Active Substance: METHOTREXATE
     Dosage: DOSE INCREASED
     Route: 065
  5. METHOTREXATE. [Suspect]
     Active Substance: METHOTREXATE
     Dosage: DOSE DECREASED
     Route: 065

REACTIONS (17)
  - Pertussis [Unknown]
  - Heat exhaustion [Unknown]
  - Sensitivity to weather change [Unknown]
  - Rheumatoid arthritis [Unknown]
  - Wound dehiscence [Unknown]
  - Bronchitis [Not Recovered/Not Resolved]
  - Osteoarthritis [Unknown]
  - Stress [Unknown]
  - Depressed mood [Unknown]
  - Transient ischaemic attack [Unknown]
  - Osteoporosis [Unknown]
  - Pneumonia [Unknown]
  - Retinal artery occlusion [Unknown]
  - Pain [Not Recovered/Not Resolved]
  - Hernia [Unknown]
  - Depression [Unknown]
  - White blood cell count increased [Unknown]

NARRATIVE: CASE EVENT DATE: 20161222
